FAERS Safety Report 4668208-8 (Version None)
Quarter: 2005Q2

REPORT INFORMATION
  Report Type: 
  Country: None (occurrence: None)
  Receive Date: 20050523
  Receipt Date: 20041221
  Transmission Date: 20051028
  Serious: Yes (Other)
  Sender: FDA-Public Use
  Company Number: PHEH2004US13580

PATIENT
  Sex: Male

DRUGS (10)
  1. PAMIDRONATE DISODIUM [Suspect]
     Indication: MULTIPLE MYELOMA
     Dosage: 90 MG Q4WKS
     Dates: start: 19990101
  2. THALIDOMIDE [Concomitant]
     Dosage: 400 MG, QHS
     Dates: start: 20000901, end: 20010201
  3. THALIDOMIDE [Concomitant]
     Dosage: 200 MG, QHS
     Dates: start: 20010401
  4. DEXAMETHASONE [Concomitant]
     Dosage: 40 MG/4DAYS Q4WEEKS
     Dates: start: 19990101, end: 19990601
  5. DEXAMETHASONE [Concomitant]
     Dosage: 40 MG X4DAYS Q4WKS
     Dates: start: 19991201, end: 20000301
  6. DEXAMETHASONE [Concomitant]
     Dosage: 40MG X4DAYS Q4WKS
     Dates: start: 20010401, end: 20011001
  7. DEXAMETHASONE [Concomitant]
     Dosage: 20MG DAY OF AND AFTER VELCADE
     Dates: start: 20020201, end: 20020101
  8. VELCADE [Concomitant]
     Dosage: 1.3 MG/M2
     Dates: start: 20011101, end: 20020401
  9. VELCADE [Concomitant]
     Dosage: 0.7 MG/M2
     Dates: start: 20020401
  10. CYTOXAN [Concomitant]
     Dates: start: 20010201, end: 20010301

REACTIONS (2)
  - JAW DISORDER [None]
  - OSTEONECROSIS [None]
